FAERS Safety Report 9242775 (Version 1)
Quarter: 2013Q2

REPORT INFORMATION
  Report Type: Spontaneous
  Country: US (occurrence: US)
  Receive Date: 20130419
  Receipt Date: 20130419
  Transmission Date: 20140414
  Serious: Yes (Hospitalization, Other)
  Sender: FDA-Public Use
  Company Number: US-PFIZER INC-2013121763

PATIENT
  Age: 92 Year
  Sex: Male
  Weight: 77.1 kg

DRUGS (1)
  1. PROCARDIA XL [Suspect]
     Indication: HYPERTENSION
     Dosage: 60 MG, 1X/DAY
     Route: 048

REACTIONS (3)
  - Myocardial infarction [Unknown]
  - Diabetes mellitus [Unknown]
  - Deafness [Unknown]
